FAERS Safety Report 23486223 (Version 1)
Quarter: 2024Q1

REPORT INFORMATION
  Report Type: Report from Study
  Country: US (occurrence: US)
  Receive Date: 20240206
  Receipt Date: 20240206
  Transmission Date: 20240410
  Serious: Yes (Other)
  Sender: FDA-Public Use
  Company Number: US-BRISTOL-MYERS SQUIBB COMPANY-2024-017095

PATIENT
  Age: 68 Year
  Sex: Male
  Weight: 89.1 kg

DRUGS (10)
  1. ELIQUIS [Suspect]
     Active Substance: APIXABAN
     Indication: Product used for unknown indication
  2. EPOPROSTENOL SODIUM [Suspect]
     Active Substance: EPOPROSTENOL SODIUM
     Indication: Pulmonary arterial hypertension
     Dosage: 1-3 NG/KG/MIN (1 IN 1 MIN)
     Route: 042
     Dates: start: 2023
  3. EPOPROSTENOL SODIUM [Suspect]
     Active Substance: EPOPROSTENOL SODIUM
     Dosage: 6 NG/KG(1 IN 1 MIN)
     Route: 042
     Dates: start: 2023
  4. EPOPROSTENOL SODIUM [Suspect]
     Active Substance: EPOPROSTENOL SODIUM
     Dosage: 10 NG/KG(1 IN 1 MIN)
     Route: 042
  5. EPOPROSTENOL SODIUM [Suspect]
     Active Substance: EPOPROSTENOL SODIUM
     Dosage: 8 NG/KG(1 IN 1 MIN)
     Route: 042
  6. EPOPROSTENOL SODIUM [Suspect]
     Active Substance: EPOPROSTENOL SODIUM
     Dosage: 5.3 NG/KG(1 IN 1 MIN)
     Route: 042
  7. EPOPROSTENOL SODIUM [Suspect]
     Active Substance: EPOPROSTENOL SODIUM
     Dosage: 25NG/KG(1 IN 1 MIN)
     Route: 042
  8. LASIX [Suspect]
     Active Substance: FUROSEMIDE
     Indication: Product used for unknown indication
  9. OPSUMIT [Concomitant]
     Active Substance: MACITENTAN
     Indication: Product used for unknown indication
  10. SILDENAFIL CITRATE [Concomitant]
     Active Substance: SILDENAFIL CITRATE
     Indication: Product used for unknown indication

REACTIONS (9)
  - Weight decreased [Unknown]
  - Anaemia [Unknown]
  - Diarrhoea [Not Recovered/Not Resolved]
  - Chromaturia [Unknown]
  - Seasonal allergy [Unknown]
  - Pain [Unknown]
  - Headache [Unknown]
  - Skin laceration [Unknown]
  - Coagulation time prolonged [Unknown]

NARRATIVE: CASE EVENT DATE: 20230101
